FAERS Safety Report 22203327 (Version 6)
Quarter: 2023Q2

REPORT INFORMATION
  Report Type: Report from Study
  Country: AR (occurrence: None)
  Receive Date: 20230412
  Receipt Date: 20230626
  Transmission Date: 20230721
  Serious: Yes (Hospitalization)
  Sender: FDA-Public Use
  Company Number: AR-ROCHE-3326044

PATIENT
  Age: 81 Year
  Sex: Female
  Weight: 74 kg

DRUGS (10)
  1. MOSUNETUZUMAB [Suspect]
     Active Substance: MOSUNETUZUMAB
     Indication: B-cell lymphoma
     Dosage: ON 06/MAR/2023, SHE RECEIVED THE MOST RECENT DOSE OF MOSUNETUZUMAB (45 MG) PRIOR TO AE  ?ON 27/MAR/2
     Route: 058
     Dates: start: 20221226
  2. POLATUZUMAB VEDOTIN [Suspect]
     Active Substance: POLATUZUMAB VEDOTIN
     Indication: B-cell lymphoma
     Dosage: ON 06/MAR/2023, SHE RECEIVED THE MOST RECENT DOSE OF MOSUNETUZUMAB (140 MG) PRIOR TO AE  ?ON 27/MAR/
     Route: 042
     Dates: start: 20221226
  3. THYROXINE [Concomitant]
     Active Substance: LEVOTHYROXINE
     Indication: Hypothyroidism
  4. ATORVASTATIN [Concomitant]
     Active Substance: ATORVASTATIN
  5. CALCIUM [Concomitant]
     Active Substance: CALCIUM
  6. ESOMEPRAZOLE [Concomitant]
     Active Substance: ESOMEPRAZOLE
  7. LINAGLIPTIN [Concomitant]
     Active Substance: LINAGLIPTIN
  8. RIVAROXABAN [Concomitant]
     Active Substance: RIVAROXABAN
     Dosage: YES
     Route: 048
     Dates: start: 20230106
  9. MEPREDNISONE [Concomitant]
     Active Substance: MEPREDNISONE
     Dosage: YES
     Route: 048
     Dates: start: 20230407
  10. ENOXAPARIN SODIUM [Concomitant]
     Active Substance: ENOXAPARIN SODIUM
     Dosage: YES
     Route: 058
     Dates: start: 20230406

REACTIONS (2)
  - Dyspnoea [Recovering/Resolving]
  - Interstitial lung disease [Recovering/Resolving]

NARRATIVE: CASE EVENT DATE: 20230320
